FAERS Safety Report 7490535-X (Version None)
Quarter: 2011Q2

REPORT INFORMATION
  Report Type: 
  Country: None (occurrence: None)
  Receive Date: 20110512
  Receipt Date: 20110511
  Transmission Date: 20111010
  Serious: Yes (Other)
  Sender: FDA-Public Use
  Company Number: AUR-APL-2011-01207

PATIENT
  Age: 71 Year
  Sex: Male

DRUGS (1)
  1. CEFAZOLIN [Suspect]

REACTIONS (1)
  - HYPOTENSION [None]
